FAERS Safety Report 5375782-5 (Version None)
Quarter: 2007Q2

REPORT INFORMATION
  Report Type: 
  Country: None (occurrence: None)
  Receive Date: 20070628
  Receipt Date: 20070622
  Transmission Date: 20071010
  Serious: Yes (Hospitalization)
  Sender: FDA-Public Use
  Company Number: S07-USA-02714-01

PATIENT
  Age: 16 Year
  Sex: Female

DRUGS (2)
  1. LEXAPRO [Suspect]
     Indication: DEPRESSION
     Dosage: 10 MG ONCE PO
     Route: 048
     Dates: start: 20070619, end: 20070619
  2. AMBIEN [Concomitant]

REACTIONS (7)
  - CHEST PAIN [None]
  - DIZZINESS [None]
  - DYSPNOEA [None]
  - HEADACHE [None]
  - NAUSEA [None]
  - PSYCHOTIC DISORDER [None]
  - THROAT TIGHTNESS [None]
